FAERS Safety Report 6384417-4 (Version None)
Quarter: 2009Q4

REPORT INFORMATION
  Report Type: 
  Country: None (occurrence: None)
  Receive Date: 20091001
  Receipt Date: 20090921
  Transmission Date: 20100525
  Serious: Yes (Death)
  Sender: FDA-Public Use
  Company Number: KR-PFIZER INC-2009268521

PATIENT
  Age: 41 Year

DRUGS (2)
  1. VORICONAZOLE [Suspect]
     Indication: FUNGAL INFECTION
     Dosage: 400 MG, 2X/DAY
     Route: 042
     Dates: start: 20061114, end: 20061115
  2. VORICONAZOLE [Suspect]
     Dosage: 300 MG, 2X/DAY
     Route: 042
     Dates: start: 20061115, end: 20061117

REACTIONS (1)
  - PERICARDIAL EFFUSION [None]
